FAERS Safety Report 14180995 (Version 1)
Quarter: 2017Q4

REPORT INFORMATION
  Report Type: Spontaneous
  Country: US (occurrence: None)
  Receive Date: 20171110
  Receipt Date: 20171110
  Transmission Date: 20180321
  Serious: Yes (Hospitalization)
  Sender: FDA-Public Use
  Company Number: None

PATIENT
  Age: 23 Year
  Sex: Female

DRUGS (10)
  1. LANTUS [Concomitant]
     Active Substance: INSULIN GLARGINE
  2. SODIUM CHLOR [Concomitant]
  3. AQUADEKS [Concomitant]
     Active Substance: MINERALS\VITAMINS
  4. CREON [Concomitant]
     Active Substance: PANCRELIPASE AMYLASE\PANCRELIPASE LIPASE\PANCRELIPASE PROTEASE
  5. PROVENTIL [Concomitant]
     Active Substance: ALBUTEROL
  6. PULMOZYME [Suspect]
     Active Substance: DORNASE ALFA
     Indication: CYSTIC FIBROSIS
     Dosage: 1 VIAL DAILY
     Route: 055
     Dates: start: 201710
  7. ADVAIR HFA [Concomitant]
     Active Substance: FLUTICASONE PROPIONATE\SALMETEROL XINAFOATE
  8. FLUTICASONE. [Concomitant]
     Active Substance: FLUTICASONE
  9. VENTOLIN [Concomitant]
     Active Substance: ALBUTEROL SULFATE
  10. TOBI [Suspect]
     Active Substance: TOBRAMYCIN
     Indication: CYSTIC FIBROSIS
     Dosage: 28 DAYS ON, 28 OFF
     Route: 055
     Dates: start: 201710

REACTIONS (1)
  - Hospitalisation [None]

NARRATIVE: CASE EVENT DATE: 2017
